FAERS Safety Report 7823140 (Version 3)
Quarter: 2014Q2

REPORT INFORMATION
  Report Type: Spontaneous
  Country: US (occurrence: US)
  Receive Date: 20110223
  Receipt Date: 20140501
  Transmission Date: 20141212
  Serious: Yes (Other)
  Sender: FDA-Public Use
  Company Number: US-ROCHE-735473

PATIENT
  Age: 16 Year
  Sex: Male
  Weight: 117.9 kg

DRUGS (2)
  1. ACCUTANE [Suspect]
     Indication: ACNE
     Dosage: FOR 3-6 MONTHS
     Route: 048
     Dates: start: 19910101, end: 1993
  2. ACCUTANE [Suspect]
     Route: 048

REACTIONS (6)
  - Colitis ulcerative [Unknown]
  - Anxiety [Unknown]
  - Gastrointestinal injury [Unknown]
  - Inflammatory bowel disease [Unknown]
  - Anal abscess [Unknown]
  - Hypertension [Unknown]
